FAERS Safety Report 6476752-6 (Version None)
Quarter: 2009Q4

REPORT INFORMATION
  Report Type: 
  Country: None (occurrence: None)
  Receive Date: 20091204
  Receipt Date: 20091204
  Transmission Date: 20100525
  Serious: Yes (Hospitalization)
  Sender: FDA-Public Use
  Company Number: None

PATIENT
  Sex: Female
  Weight: 70 kg

DRUGS (8)
  1. CISPLATIN [Suspect]
     Dosage: 139 MG
  2. ERBITUX [Suspect]
     Dosage: 458 MG
  3. FLUOROURACIL [Suspect]
     Dosage: 7480 MG
  4. IV FLUIDS [Concomitant]
  5. DECADRON [Concomitant]
  6. MORPHINE [Concomitant]
  7. ORAL LIDOCAINE [Concomitant]
  8. ZOFRAN [Concomitant]

REACTIONS (5)
  - ABDOMINAL PAIN [None]
  - DIARRHOEA [None]
  - MUCOSAL INFLAMMATION [None]
  - NAUSEA [None]
  - VOMITING [None]
